FAERS Safety Report 8668343 (Version 2)
Quarter: 2012Q4

REPORT INFORMATION
  Report Type: 
  Country: FI (occurrence: FI)
  Receive Date: 20120717
  Receipt Date: 20120830
  Transmission Date: 20130627
  Serious: Yes (Other)
  Sender: FDA-Public Use
  Company Number: FI-ROCHE-1086499

PATIENT
  Age: 65 Year
  Sex: Male

DRUGS (1)
  1. BEVACIZUMAB [Suspect]
     Indication: RENAL CANCER
     Dosage: cyclical
     Dates: start: 20101006, end: 20110427

REACTIONS (1)
  - Disease progression [Unknown]
